FAERS Safety Report 23351892 (Version 1)
Quarter: 2023Q4

REPORT INFORMATION
  Report Type: Spontaneous
  Country: IE (occurrence: IE)
  Receive Date: 20231229
  Receipt Date: 20231229
  Transmission Date: 20240110
  Serious: Yes (Death, Life-Threatening, Hospitalization)
  Sender: FDA-Public Use
  Company Number: None

PATIENT
  Age: 89 Year
  Sex: Male

DRUGS (10)
  1. OMEPRAZOLE [Suspect]
     Active Substance: OMEPRAZOLE
     Indication: Hyperchlorhydria
     Dosage: UNK
     Route: 065
  2. AZITHROMYCIN [Suspect]
     Active Substance: AZITHROMYCIN
     Indication: Campylobacter infection
     Dosage: 500 MILLIGRAM
     Route: 065
  3. NEUPRO [Suspect]
     Active Substance: ROTIGOTINE
     Indication: Parkinson^s disease
     Dosage: UNK
     Route: 065
  4. HALOPERIDOL [Suspect]
     Active Substance: HALOPERIDOL
     Indication: Analgesic therapy
     Dosage: UNK
     Route: 065
     Dates: start: 202211
  5. DIAZEPAM [Suspect]
     Active Substance: DIAZEPAM
     Indication: Restless legs syndrome
     Dosage: UNK
     Route: 065
     Dates: start: 20220919
  6. DIAZEPAM [Suspect]
     Active Substance: DIAZEPAM
     Indication: Parkinson^s disease
  7. RIVOTRIL [Concomitant]
     Active Substance: CLONAZEPAM
     Indication: Restless legs syndrome
     Dosage: UNK
     Route: 065
  8. RIVOTRIL [Concomitant]
     Active Substance: CLONAZEPAM
     Indication: Parkinson^s disease
  9. QUETIAPINE [Concomitant]
     Active Substance: QUETIAPINE
     Indication: Agitation
     Dosage: UNK
     Route: 065
     Dates: start: 2022
  10. QUETIAPINE [Concomitant]
     Active Substance: QUETIAPINE
     Indication: Delusion

REACTIONS (28)
  - COVID-19 pneumonia [Fatal]
  - Cyanosis [Fatal]
  - Altered state of consciousness [Fatal]
  - Dyspnoea [Fatal]
  - Hypoxia [Fatal]
  - Vomiting [Fatal]
  - Product use in unapproved indication [Fatal]
  - Confusional state [Fatal]
  - Product administration interrupted [Fatal]
  - Heart rate increased [Fatal]
  - Wrong technique in product usage process [Fatal]
  - Delirium [Fatal]
  - Parkinson^s disease [Fatal]
  - Transient ischaemic attack [Fatal]
  - Mental impairment [Fatal]
  - Paralysis [Fatal]
  - Weight decreased [Fatal]
  - Thermal burn [Fatal]
  - Contraindicated product administered [Fatal]
  - Multiple drug therapy [Fatal]
  - Campylobacter infection [Fatal]
  - Starvation [Fatal]
  - Complication associated with device [Fatal]
  - Respiratory rate increased [Fatal]
  - Accident [Fatal]
  - Sepsis [Fatal]
  - Anaphylactic shock [Recovered/Resolved]
  - Parkinsonian crisis [Recovered/Resolved]

NARRATIVE: CASE EVENT DATE: 20220919
